FAERS Safety Report 8829494 (Version 2)
Quarter: 2014Q2

REPORT INFORMATION
  Report Type: Report from Study
  Country: US (occurrence: US)
  Receive Date: 20121008
  Receipt Date: 20130810
  Transmission Date: 20141212
  Serious: Yes (Other)
  Sender: FDA-Public Use
  Company Number: US-BAXTER-2012BAX019362

PATIENT
  Sex: 0

DRUGS (5)
  1. CYCLOPHOSPHAMIDE FOR INJECTION, USP [Suspect]
     Indication: MEDULLOBLASTOMA
  2. CYCLOPHOSPHAMIDE FOR INJECTION, USP [Suspect]
  3. CARBOPLATIN [Suspect]
     Indication: MEDULLOBLASTOMA
  4. VINCRISTINE [Suspect]
     Indication: MEDULLOBLASTOMA
  5. VINCRISTINE [Suspect]

REACTIONS (1)
  - Myelodysplastic syndrome [Unknown]
